FAERS Safety Report 11457028 (Version 3)
Quarter: 2015Q4

REPORT INFORMATION
  Report Type: Spontaneous
  Country: JP (occurrence: JP)
  Receive Date: 20150904
  Receipt Date: 20151018
  Transmission Date: 20160304
  Serious: Yes (Hospitalization, Other)
  Sender: FDA-Public Use
  Company Number: JP-UCBSA-2015026001

PATIENT
  Age: 41 Year
  Sex: Female

DRUGS (11)
  1. KEPPRA [Suspect]
     Active Substance: LEVETIRACETAM
     Indication: EPILEPSY
     Dosage: 1000 MG DAILY
     Route: 048
     Dates: start: 20110706
  2. KEPPRA [Suspect]
     Active Substance: LEVETIRACETAM
     Dosage: 1500 MG DAILY DOSE INCREASED
     Route: 048
     Dates: start: 20120228, end: 2012
  3. CARBAMAZEPINE. [Suspect]
     Active Substance: CARBAMAZEPINE
     Dosage: 300 MG DAILY
     Route: 048
     Dates: start: 20140903, end: 20150809
  4. PREDNISOLONE VALEROACETATE [Concomitant]
     Indication: ERYTHEMA
  5. CARBAMAZEPINE. [Suspect]
     Active Substance: CARBAMAZEPINE
     Dosage: 400 MG DAILY
     Route: 048
     Dates: start: 20130228
  6. ERGOTAMINE TARTRATE W/CAFFEINE [Concomitant]
     Indication: PRODUCT USED FOR UNKNOWN INDICATION
     Dosage: UNK
     Route: 048
     Dates: start: 20120228
  7. KEPPRA [Suspect]
     Active Substance: LEVETIRACETAM
     Dosage: 1500 MG, 2X/DAY (BID)
     Route: 048
     Dates: start: 20140903
  8. CARBAMAZEPINE. [Suspect]
     Active Substance: CARBAMAZEPINE
     Indication: PRODUCT USED FOR UNKNOWN INDICATION
     Dosage: 400 - 800 MG DAILY
     Route: 048
     Dates: start: 20061004, end: 201302
  9. ERGOTAMINE TARTRATE W/CAFFEINE [Concomitant]
     Dosage: 1 DF, UNK
     Route: 048
     Dates: start: 20150403
  10. HEPARINOID [Concomitant]
     Active Substance: CHONDROITIN SULFATE (BOVINE)
     Indication: ERYTHEMA
  11. KEPPRA [Suspect]
     Active Substance: LEVETIRACETAM
     Dosage: 2000 MG DAILY DOSE INCREASED
     Route: 048
     Dates: start: 20121219

REACTIONS (3)
  - Erythema [Recovered/Resolved]
  - Seizure [Recovered/Resolved]
  - Status epilepticus [Recovered/Resolved]

NARRATIVE: CASE EVENT DATE: 20150619
